FAERS Safety Report 9507443 (Version 1)
Quarter: 2013Q1

REPORT INFORMATION
  Report Type: Spontaneous
  Country: US (occurrence: None)
  Receive Date: 20130305
  Receipt Date: 20130305
  Transmission Date: 20140127
  Serious: Yes (Other)
  Sender: FDA-Public Use
  Company Number: 163-21880-12021502

PATIENT
  Age: 35 Year
  Sex: Female

DRUGS (4)
  1. REVLIMID (LENALIDOMIDE) (25 MILLIGRAM, CAPSULES) [Suspect]
     Indication: PLASMA CELL MYELOMA
     Dosage: 25 MG, DAILY X 21D/28D, PO
     Route: 048
     Dates: start: 20110630, end: 20110701
  2. LORAZEPAM (LORAZEPAM) [Concomitant]
  3. OXYCODONE (OXYCODONE) [Concomitant]
  4. FAMOTIDINE (FAMOTIDINE) [Concomitant]

REACTIONS (2)
  - Hypersensitivity [None]
  - Rash [None]
